FAERS Safety Report 7360891-1 (Version None)
Quarter: 2011Q1

REPORT INFORMATION
  Report Type: 
  Country: None (occurrence: None)
  Receive Date: 20110315
  Receipt Date: 20110315
  Transmission Date: 20110831
  Serious: No
  Sender: FDA-Public Use
  Company Number: None

PATIENT
  Sex: Female
  Weight: 54.4316 kg

DRUGS (1)
  1. CITALOPRAM HYDROBROMIDE [Suspect]
     Indication: ANXIETY
     Dates: start: 20101219, end: 20101223

REACTIONS (7)
  - DISTURBANCE IN ATTENTION [None]
  - GAIT DISTURBANCE [None]
  - EATING DISORDER [None]
  - AMNESIA [None]
  - FATIGUE [None]
  - HEADACHE [None]
  - DIPLOPIA [None]
